FAERS Safety Report 6531840-0 (Version None)
Quarter: 2010Q1

REPORT INFORMATION
  Report Type: 
  Country: None (occurrence: None)
  Receive Date: 20100107
  Receipt Date: 20100107
  Transmission Date: 20100710
  Serious: Yes (Life-Threatening, Hospitalization)
  Sender: FDA-Public Use
  Company Number: None

PATIENT
  Age: 20 Year
  Sex: Female
  Weight: 45.3597 kg

DRUGS (1)
  1. PLAN B [Suspect]
     Indication: POST COITAL CONTRACEPTION
     Dosage: 2 PILLS 12 HOURS APART PO
     Route: 048
     Dates: start: 20090512, end: 20090513

REACTIONS (7)
  - ABDOMINAL PAIN [None]
  - BREAST CYST [None]
  - BREAST PAIN [None]
  - CHEST PAIN [None]
  - MENSTRUAL DISORDER [None]
  - OVARIAN MASS [None]
  - UNEVALUABLE EVENT [None]
